FAERS Safety Report 9321906 (Version 10)
Quarter: 2014Q2

REPORT INFORMATION
  Report Type: Spontaneous
  Country: US (occurrence: US)
  Receive Date: 20130531
  Receipt Date: 20140630
  Transmission Date: 20141212
  Serious: Yes (Other)
  Sender: FDA-Public Use
  Company Number: US-PFIZER INC-2013164469

PATIENT
  Age: 62 Year
  Sex: Female
  Weight: 69 kg

DRUGS (14)
  1. LIPITOR [Suspect]
     Indication: LOW DENSITY LIPOPROTEIN INCREASED
     Dosage: 10 MG, 1X/DAY AT BEDTIME
     Route: 048
     Dates: start: 200208, end: 200211
  2. LIPITOR [Suspect]
     Indication: CARDIOVASCULAR EVENT PROPHYLAXIS
     Dosage: 10 MG, 1X/DAY AT BEDTIME
     Route: 048
     Dates: start: 200803, end: 200912
  3. LIPITOR [Suspect]
     Dosage: 10 MG, 1X/DAY AT BEDTIME
     Route: 048
     Dates: start: 20100406, end: 201007
  4. LIPITOR [Suspect]
     Dosage: 10 MG, 1X/DAY AT BEDTIME
     Route: 048
     Dates: start: 201103, end: 201111
  5. NEXIUM [Concomitant]
     Indication: GASTROOESOPHAGEAL REFLUX DISEASE
     Dosage: 40 MG, 1X/DAY
     Route: 048
     Dates: start: 200911
  6. HYDROCODONE-ACETAMINOPHEN [Concomitant]
     Indication: PAIN
     Dosage: 7.5-750 MG THREE TIMES DAILY AS NEEDED
     Route: 048
     Dates: start: 201106
  7. SAVELLA [Concomitant]
     Dosage: 12.5 MG, 1X/DAY
     Route: 048
     Dates: start: 201106
  8. GELNIQUE [Concomitant]
     Dosage: ONCE DAILY
     Route: 062
     Dates: start: 201106
  9. VITAMIN D3 [Concomitant]
     Dosage: 2000 IU, 1X/DAY
     Route: 048
     Dates: start: 201106
  10. DICYCLOMINE [Concomitant]
     Dosage: 100 MG, 3X/DAY AS NEEDED
     Route: 048
     Dates: end: 20110607
  11. URELLE [Concomitant]
     Dosage: 81 MG, 4X/DAY AT EVERY SIX HOURS
     Route: 048
     Dates: end: 20110607
  12. CELEBREX [Concomitant]
     Dosage: 200 MG, 1X/DAY
     Route: 048
     Dates: end: 20110607
  13. FISH OIL [Concomitant]
     Dosage: 1000 MG, 1X/DAY
     Route: 048
     Dates: end: 20110607
  14. MULTIVITAMINS [Concomitant]
     Dosage: ONCE DAILY
     Route: 048
     Dates: start: 201106

REACTIONS (1)
  - Type 2 diabetes mellitus [Unknown]
